FAERS Safety Report 4305462-6 (Version None)
Quarter: 2004Q1

REPORT INFORMATION
  Report Type: 
  Country: None (occurrence: None)
  Receive Date: 20040226
  Receipt Date: 20031224
  Transmission Date: 20041129
  Serious: No
  Sender: FDA-Public Use
  Company Number: US-BRISTOL-MYERS SQUIBB COMPANY-12465316

PATIENT
  Age: 46 Year
  Sex: Male
  Weight: 65 kg

DRUGS (9)
  1. SUSTIVA [Suspect]
     Indication: HIV INFECTION
     Dosage: AT BEDTIME
     Route: 048
     Dates: start: 20031221
  2. CRIXIVAN [Concomitant]
  3. ZERIT [Concomitant]
  4. VIREAD [Concomitant]
  5. LORTAB [Concomitant]
  6. TRANXENE [Concomitant]
  7. MULTI-VITAMIN [Concomitant]
  8. DRIXORAL [Concomitant]
  9. CHONDROITIN + GLUCOSAMINE [Concomitant]

REACTIONS (4)
  - ABNORMAL DREAMS [None]
  - EATING DISORDER [None]
  - INAPPROPRIATE AFFECT [None]
  - PSYCHOMOTOR HYPERACTIVITY [None]
